FAERS Safety Report 6241576-1 (Version None)
Quarter: 2009Q2

REPORT INFORMATION
  Report Type: 
  Country: None (occurrence: None)
  Receive Date: 20090623
  Receipt Date: 20071214
  Transmission Date: 20091009
  Serious: Yes (Other)
  Sender: FDA-Public Use
  Company Number: ES-ROCHE-374727

PATIENT
  Sex: Male
  Weight: 82.8 kg

DRUGS (37)
  1. DACLIZUMAB [Suspect]
     Route: 042
     Dates: start: 20040306
  2. DACLIZUMAB [Suspect]
     Dosage: WEEK-2 AND 4 VISIT
     Route: 042
     Dates: start: 20040322
  3. DACLIZUMAB [Suspect]
     Dosage: WEEK-6 VISIT
     Route: 042
     Dates: start: 20040419
  4. DACLIZUMAB [Suspect]
     Route: 042
     Dates: start: 20040503, end: 20040503
  5. MYCOPHENOLATE MOFETIL [Suspect]
     Route: 048
     Dates: start: 20040306, end: 20040306
  6. MYCOPHENOLATE MOFETIL [Suspect]
     Route: 048
     Dates: start: 20040308, end: 20040308
  7. MYCOPHENOLATE MOFETIL [Suspect]
     Route: 048
     Dates: start: 20040309
  8. MYCOPHENOLATE MOFETIL [Suspect]
     Route: 048
     Dates: start: 20040526, end: 20040526
  9. MYCOPHENOLATE MOFETIL [Suspect]
     Route: 048
     Dates: start: 20040527, end: 20040527
  10. MYCOPHENOLATE MOFETIL [Suspect]
     Route: 048
     Dates: start: 20040528
  11. MYCOPHENOLATE MOFETIL [Suspect]
     Route: 048
     Dates: start: 20040602
  12. MYCOPHENOLATE MOFETIL [Suspect]
     Route: 048
     Dates: start: 20040610
  13. MYCOPHENOLATE MOFETIL [Suspect]
     Route: 048
     Dates: start: 20040617, end: 20040710
  14. MYCOPHENOLATE MOFETIL [Suspect]
     Dosage: FORM: VIAL
     Route: 042
     Dates: start: 20040307, end: 20040307
  15. MYCOPHENOLATE MOFETIL [Suspect]
     Route: 042
     Dates: start: 20040308, end: 20040308
  16. CYCLOSPORINE [Suspect]
     Route: 065
  17. SIROLIMUS [Suspect]
     Route: 065
  18. TACROLIMUS [Suspect]
     Route: 048
     Dates: start: 20040306, end: 20040306
  19. TACROLIMUS [Suspect]
     Route: 048
     Dates: start: 20040307
  20. TACROLIMUS [Suspect]
     Route: 048
     Dates: start: 20050328
  21. PREDNISONE [Suspect]
     Route: 048
     Dates: start: 20040308
  22. PREDNISONE [Suspect]
     Route: 048
     Dates: start: 20040427
  23. PREDNISONE [Suspect]
     Dosage: FORM: VIAL
     Route: 042
     Dates: start: 20040306, end: 20040306
  24. PREDNISONE [Suspect]
     Route: 042
     Dates: start: 20040307, end: 20040307
  25. PREDNISONE [Suspect]
     Route: 048
     Dates: start: 20040420
  26. SULFAMETHOXAZOLE AND TRIMETHOPRIM [Concomitant]
     Dosage: DOSE PROVIDED AS 80/400 MG.
     Route: 048
     Dates: start: 20040610
  27. RANITIDINE [Concomitant]
     Route: 048
     Dates: start: 20040308
  28. DOXAZOSIN MESYLATE [Concomitant]
     Route: 048
     Dates: start: 20040521
  29. BISOPROLOL [Concomitant]
     Route: 048
     Dates: start: 20040311
  30. AMLODIPINO [Concomitant]
     Route: 048
     Dates: start: 20040614
  31. PRAVASTATIN [Concomitant]
     Route: 048
     Dates: start: 20040412
  32. ALLOPURINOL [Concomitant]
     Route: 048
     Dates: start: 20040412
  33. CIPROFLOXACIN HCL [Concomitant]
     Route: 048
     Dates: start: 20040317, end: 20040324
  34. CIPROFLOXACIN HCL [Concomitant]
     Route: 048
     Dates: start: 20040331, end: 20040407
  35. NORFLOXACIN [Concomitant]
     Route: 048
     Dates: start: 20040428, end: 20040505
  36. NORFLOXACIN [Concomitant]
     Route: 048
     Dates: start: 20040515, end: 20040521
  37. VALGANCICLOVIR HCL [Concomitant]
     Route: 048
     Dates: start: 20040412, end: 20040522

REACTIONS (1)
  - HUMAN POLYOMAVIRUS INFECTION [None]
